FAERS Safety Report 18633936 (Version 1)
Quarter: 2020Q4

REPORT INFORMATION
  Report Type: Spontaneous
  Country: US (occurrence: US)
  Receive Date: 20201218
  Receipt Date: 20201218
  Transmission Date: 20210114
  Serious: Yes (Hospitalization)
  Sender: FDA-Public Use
  Company Number: None

PATIENT
  Age: 69 Year
  Sex: Male
  Weight: 113 kg

DRUGS (15)
  1. GLIPIZIDE 10 MG BID [Concomitant]
  2. CEFUROXIME AXETIL 250 MG BID [Concomitant]
  3. ZINC 220 MG DAILY [Concomitant]
  4. INSULIN DEGLUDEC 50 UNITS BID [Concomitant]
  5. VITAMINE D3 2000 UNITS BID [Concomitant]
  6. BAMLANIVIMAB. [Suspect]
     Active Substance: BAMLANIVIMAB
     Indication: COVID-19
     Dosage: ?          OTHER FREQUENCY:ONCE;?
     Route: 042
     Dates: start: 20201207, end: 20201207
  7. CODEINE/GUAIFENESIN 10MG/100MG PER 5 ML [Concomitant]
  8. FISH OIL 1000 MG BID [Concomitant]
  9. CALCIUM WITH VITAMIN D3 600MG/1500MG [Concomitant]
  10. METOPROLOL TARTRATE 12.5 MG DAILY [Concomitant]
  11. DULAGLUTIDE 0.75 MG WEEKY [Concomitant]
  12. FUROSEMIDE 40 MG QAM [Concomitant]
  13. LISINOPRIL 10 MG DAILY [Concomitant]
  14. METFORMIN 1000 MG BID [Concomitant]
  15. FUROSEMIDE 20 MG DAILY [Concomitant]

REACTIONS (2)
  - Acute kidney injury [None]
  - Encephalopathy [None]

NARRATIVE: CASE EVENT DATE: 20201217
